FAERS Safety Report 6264768-4 (Version None)
Quarter: 2009Q3

REPORT INFORMATION
  Report Type: 
  Country: None (occurrence: None)
  Receive Date: 20090710
  Receipt Date: 20090703
  Transmission Date: 20100115
  Serious: Yes (Hospitalization, Other)
  Sender: FDA-Public Use
  Company Number: PHHY2009FR23492

PATIENT
  Sex: Female

DRUGS (5)
  1. STALEVO 100 [Suspect]
     Indication: PARKINSON'S DISEASE
     Dosage: UNK
     Route: 048
     Dates: start: 20081101, end: 20090325
  2. DEROXAT [Suspect]
     Dosage: 20 MG, QD
     Dates: end: 20090323
  3. PERINDOPRIL ERBUMINE [Concomitant]
     Indication: CARDIOVASCULAR DISORDER
  4. MODOPAR [Concomitant]
     Dosage: 125 MG, QD
     Route: 048
     Dates: start: 20081101
  5. EQUANIL [Concomitant]
     Dosage: 250 MG, BID

REACTIONS (7)
  - ASTHENIA [None]
  - DIARRHOEA [None]
  - GASTROINTESTINAL DISORDER [None]
  - HYPOALBUMINAEMIA [None]
  - HYPOKALAEMIA [None]
  - MALNUTRITION [None]
  - WEIGHT DECREASED [None]
